FAERS Safety Report 22006548 (Version 10)
Quarter: 2025Q2

REPORT INFORMATION
  Report Type: Spontaneous
  Country: CA (occurrence: CA)
  Receive Date: 20230217
  Receipt Date: 20250626
  Transmission Date: 20250717
  Serious: Yes (Hospitalization, Other)
  Sender: JOHNSON AND JOHNSON
  Company Number: CA-VIIV HEALTHCARE LIMITED-CA2023AMR001990

PATIENT
  Age: 42 Year
  Sex: Male

DRUGS (63)
  1. CABENUVA [Suspect]
     Active Substance: CABOTEGRAVIR\RILPIVIRINE
     Indication: HIV infection
     Dosage: 400 MG, Q2M
     Route: 030
     Dates: start: 20220710
  2. CABENUVA [Suspect]
     Active Substance: CABOTEGRAVIR\RILPIVIRINE
     Indication: C-kit gene mutation
     Route: 030
     Dates: start: 20220810
  3. CABENUVA [Suspect]
     Active Substance: CABOTEGRAVIR\RILPIVIRINE
     Route: 030
     Dates: start: 20221031
  4. CABENUVA [Suspect]
     Active Substance: CABOTEGRAVIR\RILPIVIRINE
     Route: 030
     Dates: start: 20221227
  5. TOPIRAMATE [Suspect]
     Active Substance: TOPIRAMATE
     Indication: Anxiety
     Dosage: 25 MG, QD
     Route: 048
  6. TOPIRAMATE [Suspect]
     Active Substance: TOPIRAMATE
     Route: 048
  7. RILPIVIRINE [Suspect]
     Active Substance: RILPIVIRINE
     Indication: HIV infection
     Route: 030
  8. CABENUVA [Suspect]
     Active Substance: CABOTEGRAVIR\RILPIVIRINE
     Indication: HIV infection
     Dosage: 400 MG, Q2M
     Route: 030
     Dates: start: 20220710
  9. CABENUVA [Suspect]
     Active Substance: CABOTEGRAVIR\RILPIVIRINE
     Indication: C-kit gene mutation
     Route: 030
     Dates: start: 20220810
  10. CABENUVA [Suspect]
     Active Substance: CABOTEGRAVIR\RILPIVIRINE
     Route: 030
     Dates: start: 20221031
  11. CABENUVA [Suspect]
     Active Substance: CABOTEGRAVIR\RILPIVIRINE
     Route: 030
     Dates: start: 20221227
  12. CABOTEGRAVIR [Suspect]
     Active Substance: CABOTEGRAVIR
     Indication: HIV infection
     Route: 048
  13. ABILIFY [Suspect]
     Active Substance: ARIPIPRAZOLE
     Indication: Psychotic disorder
     Dosage: 400 MG, MO
     Route: 030
  14. SINEQUAN [Suspect]
     Active Substance: DOXEPIN HYDROCHLORIDE
     Indication: Affective disorder
     Dosage: 10 MG, QD
     Route: 048
  15. SINEQUAN [Suspect]
     Active Substance: DOXEPIN HYDROCHLORIDE
     Indication: Sleep disorder
     Route: 048
  16. TRAZODONE [Suspect]
     Active Substance: TRAZODONE HYDROCHLORIDE
     Indication: Sleep disorder
     Dosage: 50 MG, QD
     Route: 048
  17. TRAZODONE [Suspect]
     Active Substance: TRAZODONE HYDROCHLORIDE
     Route: 048
  18. JARDIANCE [Suspect]
     Active Substance: EMPAGLIFLOZIN
     Indication: Diabetes mellitus
     Dosage: 25 MG, QD
     Route: 048
  19. JARDIANCE [Suspect]
     Active Substance: EMPAGLIFLOZIN
     Route: 048
  20. METFORMIN [Suspect]
     Active Substance: METFORMIN HYDROCHLORIDE
     Indication: Diabetes mellitus
     Dosage: 500 MG, BID
     Route: 048
  21. METFORMIN [Suspect]
     Active Substance: METFORMIN HYDROCHLORIDE
     Dosage: 500 MG, Q5D
     Route: 048
  22. GLICLAZIDE [Suspect]
     Active Substance: GLICLAZIDE
     Indication: Product used for unknown indication
     Dosage: 60 MG, BID
     Route: 065
  23. GLICLAZIDE [Suspect]
     Active Substance: GLICLAZIDE
     Dosage: 30 MG, BID
     Route: 048
  24. GLICLAZIDE [Suspect]
     Active Substance: GLICLAZIDE
     Dosage: 60 MG, BID
     Route: 048
  25. GLICLAZIDE [Suspect]
     Active Substance: GLICLAZIDE
     Route: 048
  26. DIVALPROEX SODIUM [Suspect]
     Active Substance: DIVALPROEX SODIUM
     Indication: Product used for unknown indication
     Dosage: 500 MG, 1 EVERY 5 DAYS
     Route: 048
  27. DIVALPROEX SODIUM [Suspect]
     Active Substance: DIVALPROEX SODIUM
     Dosage: 500 MG, BID
     Route: 048
  28. AMITRIPTYLINE [Suspect]
     Active Substance: AMITRIPTYLINE
     Indication: Sleep disorder
     Dosage: 10 MG, QD
     Route: 048
  29. AMITRIPTYLINE [Suspect]
     Active Substance: AMITRIPTYLINE
     Indication: Affective disorder
     Route: 065
  30. ROSUVASTATIN [Suspect]
     Active Substance: ROSUVASTATIN
     Indication: Blood cholesterol abnormal
     Dosage: 10 MG, QD
     Route: 048
  31. VALPROIC ACID [Suspect]
     Active Substance: VALPROIC ACID
     Indication: Product used for unknown indication
  32. JANUVIA [Suspect]
     Active Substance: SITAGLIPTIN PHOSPHATE
     Indication: Diabetes mellitus
     Dosage: 100 MG, Z:QAM
     Route: 048
     Dates: end: 202301
  33. JANUVIA [Suspect]
     Active Substance: SITAGLIPTIN PHOSPHATE
     Dosage: 100MG,QD
     Route: 048
  34. TRANDOLAPRIL [Suspect]
     Active Substance: TRANDOLAPRIL
     Indication: Blood pressure abnormal
     Dosage: 1 MG QD
     Route: 048
  35. TRANDOLAPRIL [Suspect]
     Active Substance: TRANDOLAPRIL
     Route: 048
  36. OZEMPIC [Suspect]
     Active Substance: SEMAGLUTIDE
     Indication: Diabetes mellitus
     Dosage: 1 MG, WE,
     Route: 058
     Dates: start: 202211
  37. OZEMPIC [Suspect]
     Active Substance: SEMAGLUTIDE
     Indication: Weight decreased
  38. TOUJEO [Suspect]
     Active Substance: INSULIN GLARGINE
     Indication: Diabetes mellitus
     Dosage: UNK UNK, QD, 25 U, ONLY PICKED UP THIS TIME
     Route: 058
     Dates: start: 20220427
  39. APIDRA [Suspect]
     Active Substance: INSULIN GLULISINE
     Indication: Diabetes mellitus
     Dosage: UNK UNK, BID, 4-6U, ONLY PICKED UP THIS TIME
     Route: 058
     Dates: start: 202201
  40. APIDRA [Suspect]
     Active Substance: INSULIN GLULISINE
     Dosage: UNK UNK, 1 EVERY 5 DAYS, SOLUTION SUBCUTANEOUS
     Route: 058
     Dates: start: 202201
  41. APIDRA [Suspect]
     Active Substance: INSULIN GLULISINE
     Dosage: UNK
     Route: 058
  42. COCAINE [Suspect]
     Active Substance: COCAINE
     Indication: Product used for unknown indication
     Route: 065
  43. SEMAGLUTIDE [Suspect]
     Active Substance: SEMAGLUTIDE
     Indication: Weight decreased
     Dosage: UNK UNK, WE, 1 EVERY 1 WEEK
     Route: 058
  44. SEMAGLUTIDE [Suspect]
     Active Substance: SEMAGLUTIDE
     Indication: Diabetes mellitus
  45. DOXEPIN HYDROCHLORIDE [Suspect]
     Active Substance: DOXEPIN HYDROCHLORIDE
     Indication: Sleep disorder
  46. DOXEPIN HYDROCHLORIDE [Suspect]
     Active Substance: DOXEPIN HYDROCHLORIDE
     Indication: Affective disorder
  47. SITAGLIPTIN [Suspect]
     Active Substance: SITAGLIPTIN
     Indication: Diabetes mellitus
     Route: 048
  48. METHAMPHETAMINE HYDROCHLORIDE [Suspect]
     Active Substance: METHAMPHETAMINE HYDROCHLORIDE
     Indication: Product used for unknown indication
     Route: 065
  49. METHAMPHETAMINE [Suspect]
     Active Substance: METHAMPHETAMINE
     Indication: Product used for unknown indication
     Route: 065
  50. AMITRIPTYLINE HYDROCHLORIDE [Suspect]
     Active Substance: AMITRIPTYLINE HYDROCHLORIDE
     Indication: Sleep disorder
     Route: 065
  51. AMITRIPTYLINE HYDROCHLORIDE [Suspect]
     Active Substance: AMITRIPTYLINE HYDROCHLORIDE
     Indication: Affective disorder
  52. ROSUVASTATIN CALCIUM [Suspect]
     Active Substance: ROSUVASTATIN CALCIUM
     Indication: Blood cholesterol abnormal
     Dosage: 10 MG, QD
     Route: 065
  53. DIVALPROEX SODIUM [Suspect]
     Active Substance: DIVALPROEX SODIUM
     Indication: Product used for unknown indication
     Dosage: 500 MG, Q5D 1 EVERY .5 DAYS
     Route: 048
  54. DIVALPROEX SODIUM [Suspect]
     Active Substance: DIVALPROEX SODIUM
     Dosage: 500 MG, BID
     Route: 048
  55. METFORMIN HYDROCHLORIDE [Suspect]
     Active Substance: METFORMIN HYDROCHLORIDE
     Indication: Diabetes mellitus
     Dosage: 500 MG, BID
     Route: 048
  56. TRAZODONE HYDROCHLORIDE [Suspect]
     Active Substance: TRAZODONE HYDROCHLORIDE
     Indication: Sleep disorder
  57. METHAMPHETAMINE [Suspect]
     Active Substance: METHAMPHETAMINE
     Indication: Product used for unknown indication
  58. TRIUMEQ [Concomitant]
     Active Substance: ABACAVIR SULFATE\DOLUTEGRAVIR SODIUM\LAMIVUDINE
     Indication: HIV infection
     Route: 065
     Dates: start: 2015, end: 20220613
  59. EDURANT [Concomitant]
     Active Substance: RILPIVIRINE HYDROCHLORIDE
     Indication: HIV infection
     Route: 048
  60. VOCABRIA [Concomitant]
     Active Substance: CABOTEGRAVIR SODIUM
     Indication: HIV infection
     Dosage: 30 MG, QD
     Route: 048
  61. VOCABRIA [Concomitant]
     Active Substance: CABOTEGRAVIR SODIUM
     Route: 048
  62. VOCABRIA [Concomitant]
     Active Substance: CABOTEGRAVIR SODIUM
     Route: 048
  63. ABACAVIR SULFATE\DOLUTEGRAVIR SODIUM\LAMIVUDINE [Concomitant]
     Active Substance: ABACAVIR SULFATE\DOLUTEGRAVIR SODIUM\LAMIVUDINE
     Indication: HIV infection

REACTIONS (6)
  - Psychotic disorder [Recovered/Resolved]
  - Aggression [Recovered/Resolved]
  - Substance use [Recovered/Resolved]
  - Product dose omission issue [Unknown]
  - Inappropriate schedule of product administration [Unknown]
  - Product use in unapproved indication [Unknown]
